FAERS Safety Report 4769804-X (Version None)
Quarter: 2005Q3

REPORT INFORMATION
  Report Type: 
  Country: None (occurrence: None)
  Receive Date: 20050907
  Receipt Date: 20050510
  Transmission Date: 20060218
  Serious: Yes (Hospitalization)
  Sender: FDA-Public Use
  Company Number: HQWYE731213MAY05

PATIENT
  Sex: Female

DRUGS (1)
  1. DURACT [Suspect]
     Indication: BREAST PAIN

REACTIONS (13)
  - ANOREXIA [None]
  - ASTHENIA [None]
  - COLITIS [None]
  - FALL [None]
  - GASTROOESOPHAGEAL REFLUX DISEASE [None]
  - IMPAIRED HEALING [None]
  - INSOMNIA [None]
  - NAUSEA [None]
  - NERVOUSNESS [None]
  - PHOBIA [None]
  - SKIN INJURY [None]
  - ULCER [None]
  - WEIGHT DECREASED [None]
